FAERS Safety Report 19701898 (Version 10)
Quarter: 2022Q2

REPORT INFORMATION
  Report Type: Report from Study
  Country: US (occurrence: US)
  Receive Date: 20210813
  Receipt Date: 20220405
  Transmission Date: 20220721
  Serious: Yes (Other)
  Sender: FDA-Public Use
  Company Number: NVSC2021US177567

PATIENT
  Age: 67 Year
  Sex: Female

DRUGS (3)
  1. ENTRESTO [Suspect]
     Active Substance: SACUBITRIL\VALSARTAN
     Indication: Product used for unknown indication
     Dosage: 1 DF, BID (97/103 MG)
     Route: 048
     Dates: start: 202107
  2. ALDACTONE [Suspect]
     Active Substance: SPIRONOLACTONE
     Indication: Product used for unknown indication
     Dosage: UNK
     Route: 065
  3. COREG [Suspect]
     Active Substance: CARVEDILOL
     Indication: Product used for unknown indication
     Dosage: 25 MG, BID
     Route: 065

REACTIONS (19)
  - Corneal infection [Unknown]
  - Dyspnoea [Not Recovered/Not Resolved]
  - Fluid retention [Unknown]
  - Stress [Unknown]
  - Decreased appetite [Recovering/Resolving]
  - Malaise [Unknown]
  - Insomnia [Unknown]
  - Gynaecomastia [Unknown]
  - Psychomotor hyperactivity [Recovering/Resolving]
  - Urticaria [Recovering/Resolving]
  - Irritability [Unknown]
  - Chest pain [Unknown]
  - Tongue discomfort [Unknown]
  - Nasal congestion [Unknown]
  - Hypertension [Recovering/Resolving]
  - Nausea [Recovering/Resolving]
  - Fatigue [Not Recovered/Not Resolved]
  - Headache [Unknown]
  - Pruritus [Recovering/Resolving]

NARRATIVE: CASE EVENT DATE: 20210920
